FAERS Safety Report 4655353-6 (Version None)
Quarter: 2005Q2

REPORT INFORMATION
  Report Type: 
  Country: None (occurrence: None)
  Receive Date: 20050506
  Receipt Date: 20050422
  Transmission Date: 20051028
  Serious: Yes (Hospitalization)
  Sender: FDA-Public Use
  Company Number: FR-BOEHRINGER INGELHEIM PHARMACEUTICALS, INC.-2005-DE-01715GL

PATIENT
  Age: 52 Year
  Sex: Male

DRUGS (3)
  1. TELMISARTAN [Suspect]
     Indication: HYPERTENSION
     Route: 048
     Dates: end: 20050325
  2. IBUPROFEN [Suspect]
     Indication: DRUG USE FOR UNKNOWN INDICATION
     Route: 048
     Dates: start: 20050321, end: 20050325
  3. ROSUVASTATIN CALCIUM [Concomitant]
     Dates: start: 20050301, end: 20050325

REACTIONS (8)
  - CONFUSIONAL STATE [None]
  - DELIRIUM TREMENS [None]
  - DYSPNOEA [None]
  - HAEMODIALYSIS [None]
  - NEPHRITIS [None]
  - PLEURAL EFFUSION [None]
  - PNEUMONIA PNEUMOCOCCAL [None]
  - RENAL FAILURE ACUTE [None]
